FAERS Safety Report 4355639-9 (Version None)
Quarter: 2004Q2

REPORT INFORMATION
  Report Type: 
  Country: None (occurrence: None)
  Receive Date: 20040505
  Receipt Date: 20040426
  Transmission Date: 20050107
  Serious: Yes (Hospitalization, Other)
  Sender: FDA-Public Use
  Company Number: US-JNJFOC-20031003159

PATIENT
  Age: 45 Year
  Sex: Male

DRUGS (1)
  1. DOXIL [Suspect]
     Indication: ACCIDENTAL EXPOSURE
     Dosage: TOPICAL
     Route: 061
     Dates: start: 20021001, end: 20021001

REACTIONS (6)
  - ACCIDENTAL EXPOSURE [None]
  - ASEPTIC NECROSIS BONE [None]
  - DIZZINESS [None]
  - JOINT EFFUSION [None]
  - MUSCLE SPASMS [None]
  - OSTEOARTHRITIS [None]
